FAERS Safety Report 9822194 (Version 1)
Quarter: 2014Q1

REPORT INFORMATION
  Report Type: Spontaneous
  Country: US (occurrence: US)
  Receive Date: 20140116
  Receipt Date: 20140116
  Transmission Date: 20141002
  Serious: Yes (Hospitalization)
  Sender: FDA-Public Use
  Company Number: US-BAXTER-2014BAX001324

PATIENT
  Age: 47 Year
  Sex: Male

DRUGS (1)
  1. 0.9% SODIUM CHLORIDE INJECTION [Suspect]
     Indication: PERITONEAL DIALYSIS

REACTIONS (2)
  - Blood pressure abnormal [Recovering/Resolving]
  - Chest pain [Recovering/Resolving]
